FAERS Safety Report 13643424 (Version 3)
Quarter: 2017Q3

REPORT INFORMATION
  Report Type: Report from Study
  Country: US (occurrence: US)
  Receive Date: 20170612
  Receipt Date: 20170815
  Transmission Date: 20171127
  Serious: Yes (Hospitalization, Other)
  Sender: FDA-Public Use
  Company Number: US-GILEAD-2017-0276600

PATIENT
  Age: 66 Year
  Sex: Male

DRUGS (1)
  1. LEDIPASVIR/SOFOSBUVIR [Suspect]
     Active Substance: LEDIPASVIR\SOFOSBUVIR
     Indication: HEPATITIS C
     Dosage: 1 DF, UNK
     Route: 048
     Dates: start: 20170418

REACTIONS (13)
  - Faeces discoloured [Not Recovered/Not Resolved]
  - Increased appetite [Not Recovered/Not Resolved]
  - Libido decreased [Not Recovered/Not Resolved]
  - Abdominal distension [Recovering/Resolving]
  - Testicular pain [Not Recovered/Not Resolved]
  - Colon cancer [Unknown]
  - Abdominal discomfort [Not Recovered/Not Resolved]
  - Frequent bowel movements [Not Recovered/Not Resolved]
  - Ligament sprain [Unknown]
  - Melaena [Not Recovered/Not Resolved]
  - Abdominal pain [Unknown]
  - Bowel movement irregularity [Unknown]
  - Fatigue [Not Recovered/Not Resolved]

NARRATIVE: CASE EVENT DATE: 201705
